FAERS Safety Report 5391096-1 (Version None)
Quarter: 2007Q3

REPORT INFORMATION
  Report Type: 
  Country: None (occurrence: None)
  Receive Date: 20070719
  Receipt Date: 20070712
  Transmission Date: 20080115
  Serious: Yes (Other)
  Sender: FDA-Public Use
  Company Number: PHBS2007BR11923

PATIENT
  Age: 33 Year
  Sex: Female
  Weight: 54 kg

DRUGS (1)
  1. PARLODEL [Suspect]
     Indication: BREAST DISCHARGE
     Dosage: 2.5 MG, ONCE/SINGLE
     Route: 048
     Dates: start: 20070712, end: 20070712

REACTIONS (7)
  - DIZZINESS [None]
  - DRUG INTOLERANCE [None]
  - DRY MOUTH [None]
  - FEELING COLD [None]
  - RETCHING [None]
  - SYNCOPE [None]
  - TREMOR [None]
